FAERS Safety Report 16873460 (Version 1)
Quarter: 2019Q4

REPORT INFORMATION
  Report Type: Spontaneous
  Country: US (occurrence: US)
  Receive Date: 20191001
  Receipt Date: 20191001
  Transmission Date: 20200122
  Serious: No
  Sender: FDA-Public Use
  Company Number: US-PFIZER INC-2018098258

PATIENT
  Age: 24 Year
  Sex: Female
  Weight: 52.16 kg

DRUGS (2)
  1. RAPAMUNE [Suspect]
     Active Substance: SIROLIMUS
     Dosage: 1 MG, 1X/DAY
     Route: 048
     Dates: end: 20190524
  2. RAPAMUNE [Suspect]
     Active Substance: SIROLIMUS
     Indication: RENAL CYST
     Dosage: 1 MG, 1X/DAY
     Route: 048
     Dates: start: 2013, end: 2015

REACTIONS (3)
  - Off label use [Unknown]
  - Immune system disorder [Not Recovered/Not Resolved]
  - Product use in unapproved indication [Unknown]

NARRATIVE: CASE EVENT DATE: 2013
